FAERS Safety Report 15352685 (Version 2)
Quarter: 2018Q4

REPORT INFORMATION
  Report Type: Spontaneous
  Country: US (occurrence: US)
  Receive Date: 20180905
  Receipt Date: 20181017
  Transmission Date: 20190204
  Serious: No
  Sender: FDA-Public Use
  Company Number: US-SA-2018SA247498

PATIENT
  Sex: Male

DRUGS (4)
  1. DUPIXENT [Suspect]
     Active Substance: DUPILUMAB
     Indication: DERMATITIS ATOPIC
     Dosage: 300 MG, QOW
     Dates: start: 201806
  2. ZYRTEC [Concomitant]
     Active Substance: CETIRIZINE HYDROCHLORIDE
     Indication: PRURITUS
     Dosage: UNK
     Dates: start: 20180601
  3. MUPIROCIN. [Concomitant]
     Active Substance: MUPIROCIN
     Dosage: OINTMENT
     Dates: start: 20180627
  4. ERYTHROMYCIN BENZOYL PEROXIDE [Concomitant]
     Indication: ACNE
     Dosage: UNK
     Dates: start: 20180627

REACTIONS (10)
  - Erythema [Unknown]
  - Erythema [Recovered/Resolved]
  - Urticaria [Recovered/Resolved]
  - Sunburn [Unknown]
  - Musculoskeletal stiffness [Unknown]
  - Dermatitis [Recovered/Resolved]
  - Dry skin [Unknown]
  - Rash generalised [Unknown]
  - Insomnia [Unknown]
  - Skin infection [Unknown]

NARRATIVE: CASE EVENT DATE: 201808
